FAERS Safety Report 18585871 (Version 2)
Quarter: 2021Q1

REPORT INFORMATION
  Report Type: Spontaneous
  Country: BE (occurrence: BE)
  Receive Date: 20201207
  Receipt Date: 20210113
  Transmission Date: 20210419
  Serious: Yes (Other)
  Sender: FDA-Public Use
  Company Number: BE-PFIZER INC-2020478472

PATIENT
  Age: 13 Year
  Sex: Female

DRUGS (3)
  1. ARACYTINE [Concomitant]
     Active Substance: CYTARABINE
     Indication: ACUTE LYMPHOCYTIC LEUKAEMIA
     Dosage: 15 MG  (INTRATHECAL (IT) CHEMOTHERAPY)
     Route: 037
  2. SOLU?MEDROL [Suspect]
     Active Substance: METHYLPREDNISOLONE SODIUM SUCCINATE
     Indication: ACUTE LYMPHOCYTIC LEUKAEMIA
     Dosage: 30 MG
     Route: 037
  3. METHOTREXATE. [Concomitant]
     Active Substance: METHOTREXATE
     Indication: ACUTE LYMPHOCYTIC LEUKAEMIA
     Dosage: 12 MG (INTRATHECAL (IT) CHEMOTHERAPY)
     Route: 037

REACTIONS (9)
  - Product use in unapproved indication [Unknown]
  - Osteonecrosis [Unknown]
  - Hypoaesthesia [Recovering/Resolving]
  - Steroid diabetes [Unknown]
  - Hypertriglyceridaemia [Unknown]
  - Ataxia [Recovering/Resolving]
  - Bronchopulmonary aspergillosis [Unknown]
  - Off label use [Unknown]
  - Jaundice cholestatic [Unknown]
